FAERS Safety Report 15863694 (Version 1)
Quarter: 2019Q1

REPORT INFORMATION
  Report Type: Spontaneous
  Country: US (occurrence: US)
  Receive Date: 20190102
  Receipt Date: 20190102
  Transmission Date: 20190417
  Serious: Yes (Other)
  Sender: FDA-Public Use
  Company Number: None

PATIENT
  Age: 52 Year
  Sex: Male
  Weight: 74.84 kg

DRUGS (3)
  1. OPTUNE DEVICE [Concomitant]
  2. BEVACIZUMAB. [Suspect]
     Active Substance: BEVACIZUMAB
     Indication: GLIOBLASTOMA MULTIFORME
     Dosage: 5 MG/KG Q3W IV-REDUCED FOR PROTEINURIA IN 2017
     Route: 042
     Dates: start: 2015
  3. NOVOCURE [Concomitant]

REACTIONS (1)
  - Basedow^s disease [None]

NARRATIVE: CASE EVENT DATE: 20181111
